FAERS Safety Report 7458733-9 (Version None)
Quarter: 2011Q2

REPORT INFORMATION
  Report Type: 
  Country: None (occurrence: None)
  Receive Date: 20110504
  Receipt Date: 20110421
  Transmission Date: 20111010
  Serious: Yes (Death, Other)
  Sender: FDA-Public Use
  Company Number: IT-CELGENEUS-083-21880-11012721

PATIENT
  Sex: Male
  Weight: 90 kg

DRUGS (4)
  1. DEXAMETHASONE [Suspect]
     Route: 048
     Dates: start: 20100730, end: 20100805
  2. DEXAMETHASONE [Suspect]
     Indication: MULTIPLE MYELOMA
     Route: 048
     Dates: start: 20100603
  3. REVLIMID [Suspect]
     Dosage: 25 MILLIGRAM
     Route: 048
     Dates: start: 20100705, end: 20100805
  4. REVLIMID [Suspect]
     Indication: MULTIPLE MYELOMA
     Dosage: 25 MILLIGRAM
     Route: 048
     Dates: start: 20100603

REACTIONS (2)
  - NEUTROPENIA [None]
  - ANAEMIA [None]
